FAERS Safety Report 7783624-3 (Version None)
Quarter: 2011Q3

REPORT INFORMATION
  Report Type: 
  Country: None (occurrence: None)
  Receive Date: 20110928
  Receipt Date: 20110609
  Transmission Date: 20111222
  Serious: No
  Sender: FDA-Public Use
  Company Number: US-MYLANLABS-2011S1012033

PATIENT
  Age: 70 Year
  Sex: Female

DRUGS (1)
  1. NITRGLYCERIN TRANSDERMAL SYSTEM [Suspect]
     Dosage: Q24H
     Route: 062
     Dates: start: 20100101

REACTIONS (3)
  - APPLICATION SITE PRURITUS [None]
  - APPLICATION SITE ERYTHEMA [None]
  - APPLICATION SITE WARMTH [None]
